FAERS Safety Report 9921866 (Version 1)
Quarter: 2014Q1

REPORT INFORMATION
  Report Type: Spontaneous
  Country: US (occurrence: US)
  Receive Date: 20140225
  Receipt Date: 20140225
  Transmission Date: 20141002
  Serious: Yes (Other)
  Sender: FDA-Public Use
  Company Number: US-BRISTOL-MYERS SQUIBB COMPANY-20212783

PATIENT
  Age: 48 Year
  Sex: 0
  Weight: 108.84 kg

DRUGS (1)
  1. ENTECAVIR [Suspect]
     Indication: ACUTE HEPATITIS B
     Dosage: 1 DF=500 MCG TO 1500 MCG DAILY?ROA: RENALLY
     Dates: start: 20140206, end: 20140209

REACTIONS (1)
  - Rhabdomyolysis [Unknown]
